FAERS Safety Report 5520983-6 (Version None)
Quarter: 2007Q4

REPORT INFORMATION
  Report Type: 
  Country: None (occurrence: None)
  Receive Date: 20071119
  Receipt Date: 20071108
  Transmission Date: 20080405
  Serious: Yes (Other)
  Sender: FDA-Public Use
  Company Number: JP-ROCHE-531211

PATIENT
  Age: 59 Year
  Sex: Female

DRUGS (2)
  1. HORIZON [Suspect]
     Indication: ENDOSCOPY
     Dosage: THE PATIENT HAD RECEIVED 5 MG ONCE YEAR FOR LAST 3 YEARS
     Route: 065
     Dates: start: 20071105, end: 20071105
  2. PRIMPERAN INJ [Concomitant]
     Dates: start: 20071105, end: 20071105

REACTIONS (1)
  - ANTEROGRADE AMNESIA [None]
